FAERS Safety Report 6150736-X (Version None)
Quarter: 2009Q2

REPORT INFORMATION
  Report Type: 
  Country: None (occurrence: None)
  Receive Date: 20090408
  Receipt Date: 20090330
  Transmission Date: 20091009
  Serious: Yes (Other)
  Sender: FDA-Public Use
  Company Number: 2009S1002888

PATIENT
  Age: 90 Year
  Sex: Male

DRUGS (4)
  1. PHOSPHOSODA UNFLAVORED [Suspect]
     Indication: COLONOSCOPY
     Dosage: 90 ML;TOTAL;PO
     Route: 048
     Dates: start: 20070101, end: 20070101
  2. ARICEPT [Concomitant]
  3. NAMENDA [Concomitant]
  4. ZOCOR [Concomitant]

REACTIONS (2)
  - BLOOD CREATININE INCREASED [None]
  - BLOOD UREA INCREASED [None]
